FAERS Safety Report 18099708 (Version 1)
Quarter: 2020Q3

REPORT INFORMATION
  Report Type: Spontaneous
  Country: US (occurrence: US)
  Receive Date: 20200731
  Receipt Date: 20200731
  Transmission Date: 20201103
  Serious: No
  Sender: FDA-Public Use
  Company Number: US-PFIZER INC-2020289666

PATIENT
  Age: 60 Year
  Sex: Male
  Weight: 87.09 kg

DRUGS (1)
  1. GENOTROPIN MQ [Suspect]
     Active Substance: SOMATROPIN
     Indication: PITUITARY TUMOUR BENIGN
     Dosage: 0.4 MG, DAILY
     Dates: end: 202007

REACTIONS (3)
  - Off label use [Unknown]
  - Weight decreased [Unknown]
  - Product use in unapproved indication [Unknown]
